FAERS Safety Report 12248544 (Version 1)
Quarter: 2016Q2

REPORT INFORMATION
  Report Type: Spontaneous
  Country: US (occurrence: None)
  Receive Date: 20160407
  Receipt Date: 20160407
  Transmission Date: 20160815
  Serious: No
  Sender: FDA-Public Use
  Company Number: None

PATIENT
  Sex: Female

DRUGS (2)
  1. HUMIRA [Suspect]
     Active Substance: ADALIMUMAB
  2. RESTASIS [Suspect]
     Active Substance: CYCLOSPORINE

REACTIONS (4)
  - Venous occlusion [None]
  - Eye haemorrhage [None]
  - Hypoacusis [None]
  - Glaucoma [None]
